FAERS Safety Report 7775181-2 (Version None)
Quarter: 2011Q3

REPORT INFORMATION
  Report Type: 
  Country: None (occurrence: None)
  Receive Date: 20110923
  Receipt Date: 20110914
  Transmission Date: 20111222
  Serious: Yes (Other)
  Sender: FDA-Public Use
  Company Number: IT-CELGENEUS-083-21880-11091820

PATIENT
  Sex: Male
  Weight: 87 kg

DRUGS (3)
  1. FLUDARABINE PHOSPHATE [Suspect]
     Route: 065
  2. REVLIMID [Suspect]
     Route: 048
  3. CYCLOPHOSPHAMIDE [Suspect]
     Route: 065

REACTIONS (1)
  - SQUAMOUS CELL CARCINOMA OF SKIN [None]
